FAERS Safety Report 7437988-0 (Version None)
Quarter: 2011Q2

REPORT INFORMATION
  Report Type: 
  Country: None (occurrence: None)
  Receive Date: 20110421
  Receipt Date: 20110421
  Transmission Date: 20111010
  Serious: Yes (Hospitalization)
  Sender: FDA-Public Use
  Company Number: None

PATIENT
  Age: 59 Year
  Sex: Female

DRUGS (4)
  1. IBUPROFEN [Concomitant]
  2. AVINZA [Concomitant]
  3. ZOCOR [Suspect]
     Indication: HYPERLIPIDAEMIA
     Dosage: 20 MG DAILY PO  (MANY YEARS, D/C ON ADMIT...)
     Route: 048
  4. COENZYME Q10 [Concomitant]

REACTIONS (2)
  - IDIOSYNCRATIC DRUG REACTION [None]
  - RHABDOMYOLYSIS [None]
